FAERS Safety Report 8814787 (Version 1)
Quarter: 2012Q4

REPORT INFORMATION
  Report Type: 
  Country: US (occurrence: US)
  Receive Date: 20120928
  Receipt Date: 20120928
  Transmission Date: 20130627
  Serious: No
  Sender: FDA-Public Use
  Company Number: US-B.I. PHARMACEUTICALS,INC./RIDGEFIELD-2012-BP-23300BP

PATIENT
  Age: 82 Year
  Sex: Female
  Weight: 52 kg

DRUGS (4)
  1. MIRAPEX [Suspect]
     Indication: PARKINSON^S DISEASE
     Dosage: 4.5 mg
     Route: 048
     Dates: start: 201101, end: 20120917
  2. AZILECT [Concomitant]
     Indication: PARKINSON^S DISEASE
     Dosage: 1 mg
     Route: 048
     Dates: start: 201203
  3. STALEVO [Concomitant]
     Indication: PARKINSON^S DISEASE
     Dosage: 15 mg
     Route: 048
     Dates: start: 201207
  4. EVISTA [Concomitant]
     Indication: BONE DENSITY ABNORMAL
     Dosage: 60 mg
     Route: 048
     Dates: start: 201201

REACTIONS (2)
  - Tremor [Not Recovered/Not Resolved]
  - Insomnia [Not Recovered/Not Resolved]
